FAERS Safety Report 13538339 (Version 1)
Quarter: 2017Q2

REPORT INFORMATION
  Report Type: Spontaneous
  Country: FR (occurrence: FR)
  Receive Date: 20170512
  Receipt Date: 20170512
  Transmission Date: 20170830
  Serious: Yes (Other)
  Sender: FDA-Public Use
  Company Number: FR-AMGEN-FRASP2017069575

PATIENT
  Age: 70 Year

DRUGS (8)
  1. TAMOXIFEN [Concomitant]
     Active Substance: TAMOXIFEN
  2. AFINITOR [Concomitant]
     Active Substance: EVEROLIMUS
  3. AROMASINE [Concomitant]
     Active Substance: EXEMESTANE
  4. ENDOXAN [Concomitant]
     Active Substance: CYCLOPHOSPHAMIDE
  5. XELODA [Concomitant]
     Active Substance: CAPECITABINE
  6. ZOMETA [Concomitant]
     Active Substance: ZOLEDRONIC ACID
  7. XGEVA [Suspect]
     Active Substance: DENOSUMAB
     Indication: PRODUCT USED FOR UNKNOWN INDICATION
     Route: 065
  8. FASLODEX [Concomitant]
     Active Substance: FULVESTRANT

REACTIONS (1)
  - Osteonecrosis of jaw [Unknown]
